FAERS Safety Report 6111579-6 (Version None)
Quarter: 2009Q1

REPORT INFORMATION
  Report Type: 
  Country: None (occurrence: None)
  Receive Date: 20090310
  Receipt Date: 20090310
  Transmission Date: 20090719
  Serious: Yes (Other)
  Sender: FDA-Public Use
  Company Number: None

PATIENT
  Age: 9 Year
  Sex: Female
  Weight: 38.5557 kg

DRUGS (1)
  1. OMEPRAZOLE [Suspect]
     Indication: GASTROOESOPHAGEAL REFLUX DISEASE
     Dosage: 10MG 2X A DAY PO
     Route: 048
     Dates: start: 20090109, end: 20090117

REACTIONS (4)
  - ANXIETY [None]
  - NERVOUSNESS [None]
  - PARANOIA [None]
  - THINKING ABNORMAL [None]
